FAERS Safety Report 24762510 (Version 1)
Quarter: 2024Q4

REPORT INFORMATION
  Report Type: Report from Study
  Country: DK (occurrence: DK)
  Receive Date: 20241221
  Receipt Date: 20241221
  Transmission Date: 20250114
  Serious: Yes (Hospitalization)
  Sender: ABBVIE
  Company Number: DK-JNJFOC-20241247156

PATIENT
  Age: 76 Year
  Sex: Male

DRUGS (1)
  1. IBRUTINIB [Suspect]
     Active Substance: IBRUTINIB
     Indication: Mantle cell lymphoma
     Route: 048
     Dates: start: 20151215, end: 20171201

REACTIONS (1)
  - Central nervous system haemorrhage [Unknown]

NARRATIVE: CASE EVENT DATE: 20160311
